FAERS Safety Report 8220303-2 (Version None)
Quarter: 2012Q1

REPORT INFORMATION
  Report Type: 
  Country: None (occurrence: None)
  Receive Date: 20120316
  Receipt Date: 20120301
  Transmission Date: 20120608
  Serious: Yes (Other)
  Sender: FDA-Public Use
  Company Number: ALK_01217_2010

PATIENT
  Sex: Female
  Weight: 97.5234 kg

DRUGS (4)
  1. LOTREL ( TO UNKNOWN) [Concomitant]
  2. LIPITOR ( TO UNKNOWN) [Concomitant]
  3. VIVITROL [Suspect]
     Indication: ALCOHOLISM
     Dosage: (380 MG 1X/MONTH INTRAMUSCULAR)
     Route: 030
     Dates: start: 20100115, end: 20100212
  4. NEBIVOLOL ( TO UNKNOWN) [Concomitant]

REACTIONS (4)
  - INJECTION SITE HAEMATOMA [None]
  - SKIN LESION [None]
  - INJECTION SITE ABSCESS STERILE [None]
  - FAT NECROSIS [None]
